FAERS Safety Report 8271487 (Version 4)
Quarter: 2012Q4

REPORT INFORMATION
  Report Type: Report from Study
  Country: DE (occurrence: DE)
  Receive Date: 20111201
  Receipt Date: 20120907
  Transmission Date: 20130627
  Serious: Yes (Other)
  Sender: FDA-Public Use
  Company Number: PHHO2011DE019734

PATIENT
  Age: 48 Year
  Sex: Female
  Weight: 67.8 kg

DRUGS (4)
  1. FTY [Suspect]
     Dosage: 0.5 mg, QD
     Route: 048
     Dates: start: 20110901, end: 20111122
  2. EUTHYROX [Concomitant]
     Dosage: 75 mg, UNK
     Dates: start: 1985
  3. TARDYFERON [Concomitant]
     Dosage: UNK
     Dates: start: 201105
  4. SPASMEX [Concomitant]
     Dosage: 5 mg, TID
     Dates: start: 2008

REACTIONS (1)
  - Lentigo maligna [Recovered/Resolved]
